FAERS Safety Report 5099869-X (Version None)
Quarter: 2006Q3

REPORT INFORMATION
  Report Type: 
  Country: None (occurrence: None)
  Receive Date: 20060906
  Receipt Date: 20060906
  Transmission Date: 20061208
  Serious: Yes (Life-Threatening, Hospitalization, Disabling)
  Sender: FDA-Public Use
  Company Number: None

PATIENT
  Age: 81 Year
  Sex: Male

DRUGS (2)
  1. NATRECOR [Suspect]
     Indication: PROPHYLAXIS
     Dosage: IV BOLUS
     Route: 040
     Dates: start: 20051117, end: 20051117
  2. NATRECOR [Suspect]
     Indication: RENAL DISORDER
     Dosage: IV BOLUS
     Route: 040
     Dates: start: 20051117, end: 20051117

REACTIONS (5)
  - GROIN PAIN [None]
  - IATROGENIC INJURY [None]
  - INCORRECT ROUTE OF DRUG ADMINISTRATION [None]
  - OFF LABEL USE [None]
  - PROCEDURAL COMPLICATION [None]
